FAERS Safety Report 12666345 (Version 2)
Quarter: 2016Q3

REPORT INFORMATION
  Report Type: Spontaneous
  Country: SE (occurrence: SE)
  Receive Date: 20160818
  Receipt Date: 20160928
  Transmission Date: 20161109
  Serious: Yes (Hospitalization)
  Sender: FDA-Public Use
  Company Number: SE-ASTRAZENECA-2016SE86374

PATIENT
  Age: 60 Year
  Sex: Female

DRUGS (7)
  1. BRILIQUE [Concomitant]
     Active Substance: TICAGRELOR
  2. TROMBYL [Concomitant]
     Active Substance: ASPIRIN
  3. LOSARTAN. [Concomitant]
     Active Substance: LOSARTAN
  4. RAMIPRIL. [Concomitant]
     Active Substance: RAMIPRIL
  5. BISOPROLOL [Concomitant]
     Active Substance: BISOPROLOL
  6. CRESTOR [Suspect]
     Active Substance: ROSUVASTATIN CALCIUM
     Route: 048
     Dates: start: 20150710, end: 201508
  7. ENALAPRIL [Concomitant]
     Active Substance: ENALAPRIL
     Dates: end: 201508

REACTIONS (3)
  - Tubulointerstitial nephritis [Recovered/Resolved]
  - Hypotension [Unknown]
  - Renal failure [Unknown]

NARRATIVE: CASE EVENT DATE: 20150803
